FAERS Safety Report 4350646-4 (Version None)
Quarter: 2004Q2

REPORT INFORMATION
  Report Type: 
  Country: None (occurrence: None)
  Receive Date: 20040427
  Receipt Date: 20040301
  Transmission Date: 20050107
  Serious: Yes (Hospitalization)
  Sender: FDA-Public Use
  Company Number: 6007697

PATIENT
  Age: 61 Year
  Sex: Female

DRUGS (8)
  1. BISOPROLOL FUMARATE AND HYDROCHLOROTHIAZIDE [Suspect]
     Indication: HYPERTENSION
     Dosage: 1 IN 1 D, ORAL
     Route: 048
     Dates: start: 20040212
  2. TERCIAN (CYAMEMAZINE) [Concomitant]
     Indication: MENTAL DISORDER
     Dosage: 1 IN 1 D, ORAL
     Route: 048
     Dates: start: 20040212
  3. RISPERDAL [Concomitant]
  4. OXAZEPAM [Concomitant]
  5. STILNOX (ZOLPIDEM) [Concomitant]
  6. DEROXAT (OXYBUTYNIN) [Concomitant]
  7. MEDIATOR (BENFLOUREX HYDROCHLORIDE) [Concomitant]
  8. POTASSIUM CHLORIDE [Concomitant]

REACTIONS (9)
  - DRUG INTERACTION [None]
  - ELECTROCARDIOGRAM QT PROLONGED [None]
  - FALL [None]
  - HYPOKALAEMIA [None]
  - LUNG INFECTION [None]
  - MALAISE [None]
  - RENAL FAILURE [None]
  - RHABDOMYOLYSIS [None]
  - TORSADE DE POINTES [None]
